FAERS Safety Report 5961745-5 (Version None)
Quarter: 2008Q4

REPORT INFORMATION
  Report Type: 
  Country: None (occurrence: None)
  Receive Date: 20081121
  Receipt Date: 20081110
  Transmission Date: 20090506
  Serious: Yes (Life-Threatening)
  Sender: FDA-Public Use
  Company Number: JP-AVENTIS-200819302GDDC

PATIENT
  Age: 59 Year
  Sex: Male

DRUGS (2)
  1. RIFADIN [Suspect]
     Route: 048
     Dates: start: 20071227, end: 20080112
  2. CLARITHROMYCIN [Suspect]
     Route: 048
     Dates: start: 20071122, end: 20080111

REACTIONS (1)
  - THROMBOTIC THROMBOCYTOPENIC PURPURA [None]
